FAERS Safety Report 5216189-0 (Version None)
Quarter: 2007Q1

REPORT INFORMATION
  Report Type: 
  Country: None (occurrence: None)
  Receive Date: 20070123
  Receipt Date: 20070111
  Transmission Date: 20070707
  Serious: Yes (Hospitalization)
  Sender: FDA-Public Use
  Company Number: JP-PFIZER INC-2006152247

PATIENT
  Weight: 47 kg

DRUGS (3)
  1. SULPERAZON [Suspect]
     Indication: CHOLECYSTITIS
     Route: 042
     Dates: start: 20061127, end: 20061209
  2. ALL OTHER THERAPEUTIC PRODUCTS [Concomitant]
     Route: 042
     Dates: start: 20061127, end: 20061127
  3. ALL OTHER THERAPEUTIC PRODUCTS [Concomitant]
     Dates: start: 20061128, end: 20061216

REACTIONS (1)
  - OEDEMA [None]
